FAERS Safety Report 8726579 (Version 2)
Quarter: 2012Q4

REPORT INFORMATION
  Report Type: Report from Study
  Country: US (occurrence: US)
  Receive Date: 20120816
  Receipt Date: 20121221
  Transmission Date: 20130627
  Serious: Yes (Congenital Anomaly, Other)
  Sender: FDA-Public Use
  Company Number: US-TEVA-353499USA

PATIENT
  Age: 0 Year
  Sex: Male
  Weight: 2.79 kg

DRUGS (5)
  1. NUVIGIL [Suspect]
  2. ERGOCALCIFEROL [Concomitant]
  3. PRENATAL VITAMINS [Concomitant]
  4. GUAIFENESIN [Concomitant]
  5. ACICLOVIR [Concomitant]

REACTIONS (2)
  - Hydrocephalus [Unknown]
  - Cerebrovascular disorder [Unknown]
